FAERS Safety Report 23379320 (Version 1)
Quarter: 2024Q1

REPORT INFORMATION
  Report Type: Spontaneous
  Country: US (occurrence: US)
  Receive Date: 20240108
  Receipt Date: 20240108
  Transmission Date: 20240410
  Serious: Yes (Other)
  Sender: FDA-Public Use
  Company Number: US-ABBVIE-5575074

PATIENT
  Sex: Male

DRUGS (1)
  1. SKYRIZI [Suspect]
     Active Substance: RISANKIZUMAB-RZAA
     Indication: Psoriatic arthropathy
     Route: 058

REACTIONS (6)
  - Prostatic operation [Unknown]
  - Unevaluable event [Unknown]
  - Renal disorder [Unknown]
  - Hepatomegaly [Unknown]
  - Bladder stenosis [Unknown]
  - Splenomegaly [Unknown]
